FAERS Safety Report 24404497 (Version 1)
Quarter: 2024Q4

REPORT INFORMATION
  Report Type: Spontaneous
  Country: US (occurrence: None)
  Receive Date: 20241004
  Receipt Date: 20241004
  Transmission Date: 20250114
  Serious: Yes (Hospitalization)
  Sender: Public
  Company Number: None

PATIENT
  Age: 77 Year
  Sex: Male
  Weight: 90 kg

DRUGS (3)
  1. ENOXAPARIN [Suspect]
     Active Substance: ENOXAPARIN
     Indication: Atrial fibrillation
     Dosage: FREQUENCY : TWICE A DAY;?
     Route: 058
     Dates: start: 20240511, end: 20240523
  2. WARFARIN SODIUM [Suspect]
     Active Substance: WARFARIN SODIUM
     Indication: Atrial fibrillation
     Dates: start: 20021127
  3. ASPIRIN [Concomitant]
     Active Substance: ASPIRIN

REACTIONS (3)
  - Haematoma [None]
  - Blood loss anaemia [None]
  - Red blood cell transfusion [None]

NARRATIVE: CASE EVENT DATE: 20240524
